FAERS Safety Report 16854284 (Version 2)
Quarter: 2020Q3

REPORT INFORMATION
  Report Type: Spontaneous
  Country: US (occurrence: US)
  Receive Date: 20190926
  Receipt Date: 20200831
  Transmission Date: 20201102
  Serious: Yes (Other)
  Sender: FDA-Public Use
  Company Number: US-GILEAD-2019-0429854

PATIENT
  Age: 71 Year
  Sex: Male
  Weight: 56.24 kg

DRUGS (34)
  1. ALENDRONATE [Concomitant]
     Active Substance: ALENDRONATE SODIUM
  2. NORVIR [Concomitant]
     Active Substance: RITONAVIR
  3. TRIZIVIR [Concomitant]
     Active Substance: ABACAVIR SULFATE\LAMIVUDINE\ZIDOVUDINE
  4. METOPROLOL TARTRATE. [Concomitant]
     Active Substance: METOPROLOL TARTRATE
  5. OLYSIO [Concomitant]
     Active Substance: SIMEPREVIR
  6. OXYCODONE [Concomitant]
     Active Substance: OXYCODONE
  7. PREDNISONE. [Concomitant]
     Active Substance: PREDNISONE
  8. ALENDRONATE SODIUM. [Concomitant]
     Active Substance: ALENDRONATE SODIUM
  9. ATORVASTATIN [Concomitant]
     Active Substance: ATORVASTATIN
  10. PANTOPRAZOLE [Concomitant]
     Active Substance: PANTOPRAZOLE
  11. VALSARTAN. [Concomitant]
     Active Substance: VALSARTAN
  12. FOSAMAX [Concomitant]
     Active Substance: ALENDRONATE SODIUM
  13. ISENTRESS [Concomitant]
     Active Substance: RALTEGRAVIR POTASSIUM
  14. LANTUS [Concomitant]
     Active Substance: INSULIN GLARGINE
  15. SOVALDI [Concomitant]
     Active Substance: SOFOSBUVIR
  16. ZIAGEN [Concomitant]
     Active Substance: ABACAVIR SULFATE
  17. AMLODIPINE [Concomitant]
     Active Substance: AMLODIPINE BESYLATE
  18. MYFORTIC [Concomitant]
     Active Substance: MYCOPHENOLATE SODIUM
  19. NIFEDICAL XL [Concomitant]
     Active Substance: NIFEDIPINE
  20. TRUVADA [Suspect]
     Active Substance: EMTRICITABINE\TENOFOVIR DISOPROXIL FUMARATE
     Indication: HIV INFECTION
     Dosage: UNK
     Route: 048
     Dates: start: 2001, end: 2007
  21. COMPLERA [Suspect]
     Active Substance: EMTRICITABINE\RILPIVIRINE HYDROCHLORIDE\TENOFOVIR DISOPROXIL FUMARATE
     Indication: HIV INFECTION
     Dosage: UNK
     Route: 048
  22. ERGOCALCIFEROL. [Concomitant]
     Active Substance: ERGOCALCIFEROL
  23. KALETRA [Concomitant]
     Active Substance: LOPINAVIR\RITONAVIR
  24. TRIUMEQ [Concomitant]
     Active Substance: ABACAVIR SULFATE\DOLUTEGRAVIR SODIUM\LAMIVUDINE
  25. TACROLIMUS. [Concomitant]
     Active Substance: TACROLIMUS
  26. LISINOPRIL. [Concomitant]
     Active Substance: LISINOPRIL
  27. EPZICOM [Concomitant]
     Active Substance: ABACAVIR SULFATE\LAMIVUDINE
  28. REYATAZ [Concomitant]
     Active Substance: ATAZANAVIR SULFATE
  29. MAGNESIUM OXIDE. [Concomitant]
     Active Substance: MAGNESIUM OXIDE
  30. NOVOLOG [Concomitant]
     Active Substance: INSULIN ASPART
  31. CALCITRIOL. [Concomitant]
     Active Substance: CALCITRIOL
  32. CLINDAMYCIN. [Concomitant]
     Active Substance: CLINDAMYCIN
  33. DEXILANT [Concomitant]
     Active Substance: DEXLANSOPRAZOLE
  34. NUCYNTA [Concomitant]
     Active Substance: TAPENTADOL HYDROCHLORIDE

REACTIONS (20)
  - Fatigue [Unknown]
  - Impaired work ability [Unknown]
  - Renal failure [Unknown]
  - Renal transplant [Unknown]
  - Dysstasia [Unknown]
  - Decreased activity [Unknown]
  - Anxiety [Not Recovered/Not Resolved]
  - Back pain [Unknown]
  - Quality of life decreased [Unknown]
  - Osteoporosis [Not Recovered/Not Resolved]
  - Loss of personal independence in daily activities [Unknown]
  - Gait disturbance [Unknown]
  - Pain [Not Recovered/Not Resolved]
  - Anhedonia [Not Recovered/Not Resolved]
  - Economic problem [Not Recovered/Not Resolved]
  - Pain in extremity [Unknown]
  - Emotional distress [Not Recovered/Not Resolved]
  - End stage renal disease [Not Recovered/Not Resolved]
  - Arthralgia [Unknown]
  - Immobile [Unknown]

NARRATIVE: CASE EVENT DATE: 2007
